FAERS Safety Report 7255663-2 (Version None)
Quarter: 2011Q1

REPORT INFORMATION
  Report Type: 
  Country: None (occurrence: None)
  Receive Date: 20110129
  Receipt Date: 20100512
  Transmission Date: 20110831
  Serious: No
  Sender: FDA-Public Use
  Company Number: PR-ABBOTT-10P-131-0643817-00

PATIENT
  Sex: Male

DRUGS (5)
  1. ALBUTEROL [Concomitant]
     Dosage: USED IN NEBULIZER AS INDICATED
     Route: 055
  2. ALBUTEROL [Concomitant]
     Indication: ASTHMA
     Dosage: AS INDICATED
     Route: 048
  3. HUMIRA [Suspect]
     Indication: CROHN'S DISEASE
     Route: 058
     Dates: start: 20100101, end: 20100401
  4. ADVAIR [Concomitant]
     Indication: ASTHMA
     Route: 055
  5. KEPPRA [Concomitant]
     Indication: EPILEPSY
     Route: 048

REACTIONS (4)
  - DECREASED IMMUNE RESPONSIVENESS [None]
  - ASTHMA [None]
  - INFLUENZA LIKE ILLNESS [None]
  - ASTHENIA [None]
